FAERS Safety Report 22156075 (Version 2)
Quarter: 2023Q2

REPORT INFORMATION
  Report Type: Spontaneous
  Country: US (occurrence: US)
  Receive Date: 20230330
  Receipt Date: 20230605
  Transmission Date: 20230721
  Serious: Yes (Hospitalization, Other)
  Sender: FDA-Public Use
  Company Number: US-MYLANLABS-2023M1032136

PATIENT
  Age: 59 Year
  Sex: Male

DRUGS (4)
  1. AMLODIPINE [Suspect]
     Active Substance: AMLODIPINE BESYLATE
     Indication: Product used for unknown indication
     Dosage: UNK
     Route: 065
     Dates: end: 202303
  2. LOSARTAN [Suspect]
     Active Substance: LOSARTAN
     Indication: Product used for unknown indication
     Dosage: UNK
     Route: 065
     Dates: end: 202303
  3. TYVASO [Suspect]
     Active Substance: TREPROSTINIL
     Indication: Pulmonary hypertension
     Dosage: UNK (UNK ?G)
     Route: 055
     Dates: start: 202212
  4. TYVASO [Suspect]
     Active Substance: TREPROSTINIL
     Dosage: 48 MICROGRAM, QID (48 ?G, QID, INHALATION)
     Route: 055

REACTIONS (2)
  - Hypotension [Unknown]
  - Syncope [Unknown]

NARRATIVE: CASE EVENT DATE: 20230308
